FAERS Safety Report 7789689-7 (Version None)
Quarter: 2011Q3

REPORT INFORMATION
  Report Type: 
  Country: None (occurrence: None)
  Receive Date: 20110930
  Receipt Date: 20110928
  Transmission Date: 20111222
  Serious: Yes (Death, Hospitalization)
  Sender: FDA-Public Use
  Company Number: RU-BRISTOL-MYERS SQUIBB COMPANY-15409253

PATIENT
  Age: 20 Year
  Sex: Male

DRUGS (3)
  1. TRAMADOL HCL [Concomitant]
     Route: 030
     Dates: start: 20101122, end: 20101124
  2. CEFOPERAZONE SODIUM [Concomitant]
     Dosage: SULPERAZON # 10
     Route: 042
     Dates: start: 20101101, end: 20101114
  3. ABATACEPT [Suspect]
     Indication: SYSTEMIC LUPUS ERYTHEMATOSUS
     Dosage: OPEN: 04MAR10-18NOV2010(750MG);  BLINDED: 05MAR09-04FEB2010
     Route: 042
     Dates: start: 20090305, end: 20100204

REACTIONS (4)
  - ABSCESS LIMB [None]
  - COMPRESSION FRACTURE [None]
  - RENAL FAILURE [None]
  - SEPSIS [None]
